FAERS Safety Report 13585486 (Version 3)
Quarter: 2017Q3

REPORT INFORMATION
  Report Type: Other
  Country: US (occurrence: US)
  Receive Date: 20170526
  Receipt Date: 20170923
  Transmission Date: 20171127
  Serious: No
  Sender: FDA-Public Use
  Company Number: US-APOTEX-2017AP008692

PATIENT
  Age: 43 Year
  Sex: Female

DRUGS (1)
  1. CLARISPRAY NASAL ALLERGY [Suspect]
     Active Substance: FLUTICASONE PROPIONATE
     Indication: PRODUCT USED FOR UNKNOWN INDICATION
     Route: 045

REACTIONS (5)
  - Intentional product misuse [Unknown]
  - Product taste abnormal [Unknown]
  - Anxiety [Unknown]
  - Intentional product use issue [Unknown]
  - Feeling jittery [Unknown]
